FAERS Safety Report 5717415-1 (Version None)
Quarter: 2008Q2

REPORT INFORMATION
  Report Type: 
  Country: None (occurrence: None)
  Receive Date: 20080425
  Receipt Date: 20080417
  Transmission Date: 20081010
  Serious: Yes (Other)
  Sender: FDA-Public Use
  Company Number: US-ASTRAZENECA-2008UW07858

PATIENT
  Sex: Male

DRUGS (1)
  1. ARIMIDEX [Suspect]
     Indication: BLOOD TESTOSTERONE DECREASED
     Dates: start: 20071001

REACTIONS (2)
  - OFF LABEL USE [None]
  - RIB FRACTURE [None]
